FAERS Safety Report 19768061 (Version 1)
Quarter: 2021Q3

REPORT INFORMATION
  Report Type: Spontaneous
  Country: BR (occurrence: BR)
  Receive Date: 20210830
  Receipt Date: 20210830
  Transmission Date: 20211014
  Serious: Yes (Other)
  Sender: FDA-Public Use
  Company Number: BR-ELI_LILLY_AND_COMPANY-BR202108009217

PATIENT
  Age: 62 Year
  Sex: Female

DRUGS (2)
  1. VERZENIOS [Suspect]
     Active Substance: ABEMACICLIB
     Indication: BREAST CANCER METASTATIC
     Dosage: UNK, UNKNOWN
     Route: 065
  2. LETROZOLE. [Concomitant]
     Active Substance: LETROZOLE
     Indication: BREAST CANCER METASTATIC
     Dosage: UNK, UNKNOWN
     Route: 065

REACTIONS (10)
  - Lymphangiosis carcinomatosa [Unknown]
  - Neutropenia [Unknown]
  - Diarrhoea [Unknown]
  - Cough [Unknown]
  - Malignant neoplasm progression [Unknown]
  - Fatigue [Unknown]
  - Metastases to liver [Unknown]
  - Pyrexia [Unknown]
  - Weight decreased [Unknown]
  - Dyspnoea exertional [Unknown]
